FAERS Safety Report 8589955-1 (Version None)
Quarter: 2012Q3

REPORT INFORMATION
  Report Type: 
  Country: None (occurrence: None)
  Receive Date: 20120813
  Receipt Date: 19900215
  Transmission Date: 20120928
  Serious: Yes (Hospitalization)
  Sender: FDA-Public Use
  Company Number: US-ROCHE-1099312

PATIENT
  Sex: Male

DRUGS (3)
  1. ACTIVASE [Suspect]
     Dosage: 40 MG IN 90 ML DISTILLED WATER
     Route: 042
  2. ACTIVASE [Suspect]
     Route: 042
  3. ACTIVASE [Suspect]
     Indication: ACUTE MYOCARDIAL INFARCTION
     Route: 040

REACTIONS (3)
  - VENTRICULAR FIBRILLATION [None]
  - VENTRICULAR EXTRASYSTOLES [None]
  - CHEST PAIN [None]
